APPROVED DRUG PRODUCT: CLINDAMYCIN PHOSPHATE
Active Ingredient: CLINDAMYCIN PHOSPHATE
Strength: 1%
Dosage Form/Route: AEROSOL, FOAM;TOPICAL
Application: A210778 | Product #001 | TE Code: AT
Applicant: GLENMARK PHARMACEUTICALS LTD
Approved: Sep 20, 2021 | RLD: No | RS: No | Type: RX